FAERS Safety Report 14487085 (Version 1)
Quarter: 2018Q1

REPORT INFORMATION
  Report Type: Spontaneous
  Country: US (occurrence: US)
  Receive Date: 20180204
  Receipt Date: 20180204
  Transmission Date: 20180509
  Serious: Yes (Hospitalization, Other)
  Sender: FDA-Public Use
  Company Number: None

PATIENT
  Sex: Female
  Weight: 48.15 kg

DRUGS (6)
  1. AMITRIPTYLINE [Concomitant]
     Active Substance: AMITRIPTYLINE
  2. OMEGA-3 FISH OIL [Concomitant]
     Active Substance: FISH OIL\OMEGA-3 FATTY ACIDS
  3. LIQUID MINERALS [Concomitant]
  4. LINZESS [Suspect]
     Active Substance: LINACLOTIDE
     Indication: CONSTIPATION
     Route: 048
     Dates: start: 20171212
  5. PROBIOTIC [Concomitant]
     Active Substance: PROBIOTICS NOS
  6. ONE A DAY MULTIVITAMIN [Concomitant]

REACTIONS (6)
  - General physical health deterioration [None]
  - Diarrhoea [None]
  - Rectal injury [None]
  - Malaise [None]
  - Haemorrhoids [None]
  - Electrolyte imbalance [None]

NARRATIVE: CASE EVENT DATE: 20180203
